FAERS Safety Report 6447828-4 (Version None)
Quarter: 2009Q4

REPORT INFORMATION
  Report Type: 
  Country: None (occurrence: None)
  Receive Date: 20091120
  Receipt Date: 20091005
  Transmission Date: 20100525
  Serious: No
  Sender: FDA-Public Use
  Company Number: A0810379A

PATIENT
  Age: 66 Year
  Sex: Female

DRUGS (4)
  1. VERAMYST [Suspect]
     Indication: RHINITIS
     Route: 045
     Dates: start: 20091003, end: 20091003
  2. OXYGEN [Concomitant]
  3. ADVAIR DISKUS 100/50 [Concomitant]
  4. SPIRIVA [Concomitant]

REACTIONS (1)
  - HEADACHE [None]
